FAERS Safety Report 11518651 (Version 1)
Quarter: 2015Q3

REPORT INFORMATION
  Report Type: Spontaneous
  Country: RU (occurrence: RU)
  Receive Date: 20150917
  Receipt Date: 20150917
  Transmission Date: 20151125
  Serious: Yes (Other)
  Sender: FDA-Public Use
  Company Number: RU-ALEXION PHARMACEUTICALS INC-A201403946

PATIENT

DRUGS (1)
  1. SOLIRIS [Suspect]
     Active Substance: ECULIZUMAB
     Indication: HAEMOLYTIC URAEMIC SYNDROME
     Dosage: 2 VIALS, Q2W
     Route: 042
     Dates: start: 20121227

REACTIONS (1)
  - Chronic kidney disease [Unknown]
